FAERS Safety Report 15022500 (Version 1)
Quarter: 2018Q2

REPORT INFORMATION
  Report Type: Spontaneous
  Country: ZA (occurrence: ZA)
  Receive Date: 20180618
  Receipt Date: 20180618
  Transmission Date: 20180711
  Serious: Yes (Hospitalization)
  Sender: FDA-Public Use
  Company Number: ZA-PFIZER INC-2018242232

PATIENT
  Age: 69 Year
  Sex: Female

DRUGS (6)
  1. PREXUM PLUS /01421201/ [Suspect]
     Active Substance: INDAPAMIDE\PERINDOPRIL ERBUMINE
     Dosage: UNK
  2. PIXICAM [Suspect]
     Active Substance: PIROXICAM
     Dosage: 20 MG, UNK
  3. SIMVACOR [Suspect]
     Active Substance: SIMVASTATIN
     Dosage: 10 MG, UNK
  4. IVEDAL [Suspect]
     Active Substance: ZOLPIDEM TARTRATE
     Dosage: 10 MG, UNK
  5. VENTOLIN [Suspect]
     Active Substance: ALBUTEROL SULFATE
     Dosage: 100 UG, UNK
  6. MEDROL [Suspect]
     Active Substance: METHYLPREDNISOLONE
     Dosage: 4 MG, UNK

REACTIONS (1)
  - Cystitis [Unknown]
